APPROVED DRUG PRODUCT: ALBENDAZOLE
Active Ingredient: ALBENDAZOLE
Strength: 200MG
Dosage Form/Route: TABLET;ORAL
Application: A211034 | Product #001 | TE Code: AB
Applicant: DR REDDYS LABORATORIES LTD
Approved: Jan 26, 2021 | RLD: No | RS: Yes | Type: RX